FAERS Safety Report 7270914-6 (Version None)
Quarter: 2011Q1

REPORT INFORMATION
  Report Type: 
  Country: None (occurrence: None)
  Receive Date: 20110125
  Receipt Date: 20110125
  Transmission Date: 20110831
  Serious: Yes (Other)
  Sender: FDA-Public Use
  Company Number: None

PATIENT
  Sex: Male
  Weight: 136.4 kg

DRUGS (4)
  1. FLUTICASONE PROPIONATE [Concomitant]
  2. VENLAFAXINE [Concomitant]
  3. VYVANSE [Suspect]
     Indication: ATTENTION DEFICIT/HYPERACTIVITY DISORDER
     Dosage: 50 MG QAM PO
     Route: 048
     Dates: start: 20110108, end: 20110124
  4. FEXOFENADINE [Concomitant]

REACTIONS (6)
  - HEADACHE [None]
  - PALPITATIONS [None]
  - BRONCHOSPASM [None]
  - NASAL CONGESTION [None]
  - TACHYCARDIA [None]
  - INITIAL INSOMNIA [None]
